FAERS Safety Report 23035030 (Version 1)
Quarter: 2023Q4

REPORT INFORMATION
  Report Type: Spontaneous
  Country: CN (occurrence: CN)
  Receive Date: 20231005
  Receipt Date: 20231005
  Transmission Date: 20240110
  Serious: Yes (Death)
  Sender: FDA-Public Use
  Company Number: CN-Merck Healthcare KGaA-2023477534

PATIENT
  Age: 61 Year
  Sex: Male

DRUGS (5)
  1. ERBITUX [Suspect]
     Active Substance: CETUXIMAB
     Indication: Colon cancer metastatic
     Dosage: 320 MG/M2, OTHER
     Route: 065
     Dates: start: 20220708
  2. ERBITUX [Suspect]
     Active Substance: CETUXIMAB
     Dosage: 160 MG/M2, OTHER
     Route: 065
  3. LEUCOVORIN CALCIUM [Suspect]
     Active Substance: LEUCOVORIN CALCIUM
     Indication: Colon cancer metastatic
     Dosage: 400 MG/M2, OTHER
     Route: 065
     Dates: start: 20220708
  4. FLUOROURACIL [Suspect]
     Active Substance: FLUOROURACIL
     Indication: Colon cancer metastatic
     Dosage: 366 MG/M2, OTHER
     Route: 042
     Dates: start: 20220708
  5. FLUOROURACIL [Suspect]
     Active Substance: FLUOROURACIL
     Dosage: 1600 MG, SINGLE
     Route: 042

REACTIONS (8)
  - Portal vein thrombosis [Fatal]
  - Abdominal infection [Fatal]
  - Pneumonia bacterial [Fatal]
  - Pneumonia fungal [Fatal]
  - Respiratory failure [Fatal]
  - Small intestinal obstruction [Unknown]
  - Splenic vein thrombosis [Unknown]
  - Off label use [Unknown]

NARRATIVE: CASE EVENT DATE: 20220711
